FAERS Safety Report 11232317 (Version 2)
Quarter: 2016Q1

REPORT INFORMATION
  Report Type: Spontaneous
  Country: FR (occurrence: FR)
  Receive Date: 20150701
  Receipt Date: 20160209
  Transmission Date: 20160525
  Serious: Yes (Death, Hospitalization, Other)
  Sender: FDA-Public Use
  Company Number: FR-BRISTOL-MYERS SQUIBB COMPANY-BMS-2015-040937

PATIENT
  Age: 78 Year
  Sex: Male

DRUGS (7)
  1. COUMADINE [Suspect]
     Active Substance: WARFARIN SODIUM
     Indication: ATRIAL FIBRILLATION
     Dosage: 6 MG, QD
     Route: 048
     Dates: end: 20150408
  2. ALLOPURINOL. [Concomitant]
     Active Substance: ALLOPURINOL
     Indication: PRODUCT USED FOR UNKNOWN INDICATION
     Dosage: 1 DF, QD
     Route: 048
  3. TRIATEC                            /00116401/ [Concomitant]
     Active Substance: ACETAMINOPHEN\CODEINE PHOSPHATE
     Indication: CARDIAC FAILURE
     Dosage: 1 DF, UNK
     Route: 048
  4. ALDACTONE [Concomitant]
     Active Substance: SPIRONOLACTONE
     Indication: PRODUCT USED FOR UNKNOWN INDICATION
     Dosage: 1 DF, QD
     Route: 048
  5. REVLIMID [Concomitant]
     Active Substance: LENALIDOMIDE
     Indication: MYELODYSPLASTIC SYNDROME
     Dosage: 5 MG, UNK
     Route: 065
  6. LASILIX                            /00032601/ [Concomitant]
     Active Substance: FUROSEMIDE
     Indication: CARDIAC FAILURE
     Dosage: 250 MG, QD
     Route: 048
  7. BISOCE [Concomitant]
     Active Substance: BISOPROLOL
     Indication: CARDIAC FAILURE
     Route: 048

REACTIONS (6)
  - Cardiac failure [Fatal]
  - Femur fracture [Unknown]
  - Haematoma [Recovering/Resolving]
  - Hypotension [Recovered/Resolved]
  - International normalised ratio increased [Recovered/Resolved]
  - Off label use [Unknown]

NARRATIVE: CASE EVENT DATE: 20150408
